FAERS Safety Report 9481823 (Version 2)
Quarter: 2013Q3

REPORT INFORMATION
  Report Type: Spontaneous
  Country: CA (occurrence: CA)
  Receive Date: 20130828
  Receipt Date: 20130828
  Transmission Date: 20140515
  Serious: Yes (Hospitalization)
  Sender: FDA-Public Use
  Company Number: CA-AMGEN-KDL229315

PATIENT
  Age: 66 Year
  Sex: Male

DRUGS (1)
  1. ENBREL [Suspect]
     Indication: RHEUMATOID ARTHRITIS
     Dosage: 25 MG, 2 TIMES/WK
     Route: 058
     Dates: start: 20011203, end: 20060703

REACTIONS (6)
  - Renal failure [Unknown]
  - Cardiac failure congestive [Unknown]
  - Bacterial infection [Unknown]
  - Localised infection [Unknown]
  - Blister [Recovered/Resolved]
  - Cellulitis [Unknown]
